FAERS Safety Report 14299786 (Version 1)
Quarter: 2017Q4

REPORT INFORMATION
  Report Type: Report from Study
  Country: None (occurrence: US)
  Receive Date: 20171219
  Receipt Date: 20171219
  Transmission Date: 20180321
  Serious: Yes (Hospitalization, Other)
  Sender: FDA-Public Use
  Company Number: US-ABBVIE-17K-163-2159470-00

PATIENT
  Age: 75 Year
  Sex: Male
  Weight: 73.55 kg

DRUGS (2)
  1. VITAMIN D [Concomitant]
     Active Substance: CHOLECALCIFEROL
     Indication: PRODUCT USED FOR UNKNOWN INDICATION
  2. HUMIRA [Suspect]
     Active Substance: ADALIMUMAB
     Indication: CROHN^S DISEASE
     Route: 058
     Dates: start: 201606, end: 201710

REACTIONS (6)
  - Abscess intestinal [Recovered/Resolved]
  - Pain [Recovering/Resolving]
  - Intestinal stenosis [Recovering/Resolving]
  - Abdominal adhesions [Unknown]
  - Haemoglobin decreased [Not Recovered/Not Resolved]
  - Cholecystitis [Recovering/Resolving]

NARRATIVE: CASE EVENT DATE: 201710
